FAERS Safety Report 9320892 (Version 1)
Quarter: 2013Q2

REPORT INFORMATION
  Report Type: Spontaneous
  Country: US (occurrence: US)
  Receive Date: 20130531
  Receipt Date: 20130531
  Transmission Date: 20140414
  Serious: Yes (Other)
  Sender: FDA-Public Use
  Company Number: PHEH2013US011473

PATIENT
  Sex: Female

DRUGS (3)
  1. SANDOSTATIN LAR DEPOT [Suspect]
     Dosage: 1X 28 DAYS
  2. MULTI-VIT [Concomitant]
     Indication: ASTHENIA
     Dosage: UNK UKN, UNK
  3. THYROID THERAPY [Concomitant]
     Dosage: UNK UKN, UNK

REACTIONS (8)
  - Neoplasm [Unknown]
  - Cough [Unknown]
  - Pollakiuria [Unknown]
  - Arthralgia [Unknown]
  - Back pain [Unknown]
  - Asthenia [Unknown]
  - Blood glucose increased [Unknown]
  - Diarrhoea [Unknown]
